FAERS Safety Report 16589317 (Version 1)
Quarter: 2019Q3

REPORT INFORMATION
  Report Type: Spontaneous
  Country: ES (occurrence: ES)
  Receive Date: 20190718
  Receipt Date: 20190718
  Transmission Date: 20191004
  Serious: Yes (Death, Hospitalization, Other)
  Sender: FDA-Public Use
  Company Number: ES-SUN PHARMACEUTICAL INDUSTRIES LTD-2019R1-213499

PATIENT
  Age: 47 Year
  Sex: Male

DRUGS (1)
  1. DEXAMETHASONE. [Suspect]
     Active Substance: DEXAMETHASONE
     Indication: POSTOPERATIVE CARE
     Dosage: 4 MILLIGRAM, BID
     Route: 065

REACTIONS (6)
  - Medication error [Not Recovered/Not Resolved]
  - Necrotising fasciitis [Unknown]
  - Hepatitis acute [Unknown]
  - Pain [Unknown]
  - Mucormycosis [Unknown]
  - Multiple organ dysfunction syndrome [Fatal]
